FAERS Safety Report 6942907-7 (Version None)
Quarter: 2010Q3

REPORT INFORMATION
  Report Type: 
  Country: None (occurrence: None)
  Receive Date: 20100824
  Receipt Date: 20100824
  Transmission Date: 20110219
  Serious: Yes (Hospitalization)
  Sender: FDA-Public Use
  Company Number: None

PATIENT
  Age: 83 Year
  Sex: Female
  Weight: 68.0396 kg

DRUGS (3)
  1. DILTIAZEM [Suspect]
     Dosage: 1 CAP ONCE A DAY
     Dates: start: 20100726, end: 20100805
  2. PREDNISOLONE [Concomitant]
  3. SOLU-MEDROL [Concomitant]

REACTIONS (1)
  - RASH GENERALISED [None]
